FAERS Safety Report 9716195 (Version 2)
Quarter: 2014Q2

REPORT INFORMATION
  Report Type: Spontaneous
  Country: US (occurrence: US)
  Receive Date: 20131127
  Receipt Date: 20140501
  Transmission Date: 20141212
  Serious: Yes (Other)
  Sender: FDA-Public Use
  Company Number: US-ASTELLAS-2013US012391

PATIENT
  Sex: Male

DRUGS (1)
  1. XTANDI [Suspect]
     Indication: PROSTATE CANCER
     Route: 048
     Dates: end: 201309

REACTIONS (4)
  - Adverse drug reaction [Unknown]
  - Laboratory test abnormal [Unknown]
  - Muscle spasms [Unknown]
  - Electrolyte depletion [Unknown]
